FAERS Safety Report 6701076-9 (Version None)
Quarter: 2010Q2

REPORT INFORMATION
  Report Type: 
  Country: None (occurrence: None)
  Receive Date: 20100428
  Receipt Date: 20100414
  Transmission Date: 20101027
  Serious: Yes (Hospitalization)
  Sender: FDA-Public Use
  Company Number: ES-ELI_LILLY_AND_COMPANY-ES201004003814

PATIENT
  Sex: Female
  Weight: 67 kg

DRUGS (5)
  1. FORTEO [Suspect]
     Indication: OSTEOPOROSIS
     Dosage: 20 UG, DAILY (1/D)
     Route: 058
     Dates: start: 20100319, end: 20100413
  2. NEUROTIN                           /00949202/ [Concomitant]
     Indication: PAIN
     Dosage: 300 MG, 2/D
     Route: 048
  3. PREDNISONA [Concomitant]
     Indication: LEUKAEMIA
     Dosage: 10 MG, DAILY (1/D)
     Route: 048
  4. PARACETAMOL [Concomitant]
     Indication: PAIN
     Dosage: 1 G, 3/D
     Route: 048
  5. TRANSTEC [Concomitant]
     Indication: PAIN

REACTIONS (4)
  - ANXIETY [None]
  - ASPHYXIA [None]
  - INFLAMMATION [None]
  - OVERDOSE [None]
